FAERS Safety Report 7659281-3 (Version None)
Quarter: 2011Q3

REPORT INFORMATION
  Report Type: 
  Country: None (occurrence: None)
  Receive Date: 20110805
  Receipt Date: 20110725
  Transmission Date: 20111222
  Serious: Yes (Other)
  Sender: FDA-Public Use
  Company Number: US-ROCHE-757431

PATIENT
  Sex: Male
  Weight: 49.4 kg

DRUGS (2)
  1. ACCUTANE [Suspect]
     Dosage: OTHER INDICATION:PSORIASIS
     Route: 065
     Dates: start: 19961218, end: 19970514
  2. ACCUTANE [Suspect]
     Indication: ACNE
     Route: 065
     Dates: start: 19950101, end: 19960101

REACTIONS (11)
  - ANAL FISSURE [None]
  - INFLAMMATORY BOWEL DISEASE [None]
  - DEPRESSION [None]
  - GASTROINTESTINAL INJURY [None]
  - OCULAR HYPERAEMIA [None]
  - OROPHARYNGEAL PAIN [None]
  - THIRST [None]
  - COLITIS ULCERATIVE [None]
  - SUICIDAL IDEATION [None]
  - LIP DRY [None]
  - DRY SKIN [None]
